FAERS Safety Report 21730558 (Version 1)
Quarter: 2022Q4

REPORT INFORMATION
  Report Type: Spontaneous
  Country: AU (occurrence: AU)
  Receive Date: 20221215
  Receipt Date: 20221215
  Transmission Date: 20230113
  Serious: Yes (Other)
  Sender: FDA-Public Use
  Company Number: None

PATIENT
  Age: 67 Year
  Sex: Male

DRUGS (9)
  1. MYCOPHENOLATE MOFETIL [Suspect]
     Active Substance: MYCOPHENOLATE MOFETIL
     Indication: VEXAS syndrome
     Dosage: UNK
     Route: 065
  2. METHOTREXATE [Suspect]
     Active Substance: METHOTREXATE
     Indication: VEXAS syndrome
     Dosage: UNK
     Route: 065
  3. ADALIMUMAB [Concomitant]
     Active Substance: ADALIMUMAB
     Indication: VEXAS syndrome
     Dosage: UNK
     Route: 065
  4. ETANERCEPT [Concomitant]
     Active Substance: ETANERCEPT
     Indication: VEXAS syndrome
     Dosage: UNK
     Route: 065
  5. METHYLPREDNISOLONE [Concomitant]
     Active Substance: METHYLPREDNISOLONE
     Indication: VEXAS syndrome
     Dosage: 3 DF (500 MILLIGRAM)
     Route: 065
  6. PREDNISONE [Concomitant]
     Active Substance: PREDNISONE
     Indication: VEXAS syndrome
     Dosage: 60 MILLIGRAM
     Route: 065
  7. PREDNISONE [Concomitant]
     Active Substance: PREDNISONE
     Dosage: 5 MILLIGRAM
     Route: 065
  8. RITUXIMAB [Concomitant]
     Active Substance: RITUXIMAB
     Indication: VEXAS syndrome
     Dosage: UNK
     Route: 065
  9. TOCILIZUMAB [Concomitant]
     Active Substance: TOCILIZUMAB
     Indication: VEXAS syndrome
     Dosage: UNK
     Route: 065

REACTIONS (1)
  - Cytopenia [Unknown]
